FAERS Safety Report 5055927-7 (Version None)
Quarter: 2006Q3

REPORT INFORMATION
  Report Type: 
  Country: None (occurrence: None)
  Receive Date: 20060717
  Receipt Date: 20060629
  Transmission Date: 20061208
  Serious: Yes (Death, Life-Threatening, Hospitalization)
  Sender: FDA-Public Use
  Company Number: 226475

PATIENT
  Age: 59 Year
  Sex: Male
  Weight: 55 kg

DRUGS (4)
  1. AVASTIN [Suspect]
     Indication: COLORECTAL CANCER METASTATIC
     Dosage: 275 MG, Q2W, INTRAVENOUS
     Route: 042
     Dates: start: 20050613, end: 20060424
  2. OXALIPLATIN (OXALIPLATIN) [Suspect]
     Indication: COLORECTAL CANCER METASTATIC
     Dosage: 185 MG, Q2W, INTRAVENOUS
     Route: 042
     Dates: start: 20050613, end: 20060424
  3. FLUOROURACIL [Suspect]
     Indication: COLORECTAL CANCER METASTATIC
     Dosage: 1600 MG, Q2W, INTRAVENOUS
     Route: 042
     Dates: start: 20050613, end: 20060424
  4. CALCIUM FOLINATE (LEUCOVORIN CALCIUM) [Suspect]
     Indication: COLORECTAL CANCER METASTATIC
     Dosage: 300 MG, Q2W, INTRAVENOUS
     Route: 042
     Dates: start: 20040613, end: 20060424

REACTIONS (6)
  - APHASIA [None]
  - CEREBRAL ISCHAEMIA [None]
  - DEVICE FAILURE [None]
  - HEMIPARESIS [None]
  - PNEUMONIA [None]
  - RESPIRATORY FAILURE [None]
